FAERS Safety Report 21799108 (Version 1)
Quarter: 2022Q4

REPORT INFORMATION
  Report Type: Spontaneous
  Country: US (occurrence: US)
  Receive Date: 20221230
  Receipt Date: 20221230
  Transmission Date: 20230112
  Serious: No
  Sender: FDA-Public Use
  Company Number: US-BAUSCH-BL-2022-027942

PATIENT
  Sex: Male

DRUGS (1)
  1. CROMOLYN SODIUM [Suspect]
     Active Substance: CROMOLYN SODIUM
     Indication: Rhinorrhoea
     Dosage: 2 TO 3 SPRAYS IN EACH NOSTRIL
     Route: 045
     Dates: start: 20221221, end: 20221221

REACTIONS (3)
  - Headache [Unknown]
  - Product use complaint [Unknown]
  - Device issue [Unknown]

NARRATIVE: CASE EVENT DATE: 20221221
